FAERS Safety Report 4310244-5 (Version None)
Quarter: 2004Q1

REPORT INFORMATION
  Report Type: 
  Country: None (occurrence: None)
  Receive Date: 20040301
  Receipt Date: 20031222
  Transmission Date: 20041129
  Serious: No
  Sender: FDA-Public Use
  Company Number: WAES 0312USA02337

PATIENT
  Sex: Female

DRUGS (4)
  1. ZETIA [Suspect]
     Indication: BLOOD CHOLESTEROL INCREASED
     Dosage: 10MG/DAILY/PO
     Dates: start: 20031111
  2. FLONASE [Concomitant]
  3. DIMETHYL SULFONE (+) GLUCOSAMINE [Concomitant]
  4. INDAPAMIDE [Concomitant]

REACTIONS (1)
  - THIRST [None]
